FAERS Safety Report 4452267-1 (Version None)
Quarter: 2004Q3

REPORT INFORMATION
  Report Type: 
  Country: None (occurrence: None)
  Receive Date: 20040917
  Receipt Date: 20040909
  Transmission Date: 20050211
  Serious: Yes (Hospitalization)
  Sender: FDA-Public Use
  Company Number: US-BRISTOL-MYERS SQUIBB COMPANY-12697041

PATIENT
  Age: 77 Year
  Sex: Male
  Weight: 60 kg

DRUGS (7)
  1. CARBOPLATIN [Suspect]
     Indication: NON-SMALL CELL LUNG CANCER
     Dosage: AUC 6
     Dates: start: 20040802, end: 20040802
  2. PEMETREXED DISODIUM [Suspect]
     Indication: NON-SMALL CELL LUNG CANCER
     Dates: start: 20040802, end: 20040802
  3. RADIATION THERAPY [Suspect]
     Indication: NON-SMALL CELL LUNG CANCER
     Dosage: DOSE: 200 CGY
     Dates: start: 20040823, end: 20040823
  4. FOLIC ACID [Concomitant]
     Indication: CHEMOTHERAPY
     Route: 048
     Dates: start: 20040723
  5. MEVACOR [Concomitant]
     Indication: HYPERCHOLESTEROLAEMIA
     Route: 048
     Dates: start: 20040401
  6. ASPIRIN [Concomitant]
     Indication: PROPHYLAXIS
     Route: 048
     Dates: start: 20040401
  7. B12 [Concomitant]
     Dates: start: 20040723

REACTIONS (7)
  - ATRIAL FLUTTER [None]
  - BLOOD POTASSIUM INCREASED [None]
  - HAEMATOCRIT DECREASED [None]
  - HAEMOGLOBIN DECREASED [None]
  - PLATELET COUNT INCREASED [None]
  - PROTHROMBIN TIME PROLONGED [None]
  - THERAPY NON-RESPONDER [None]
